FAERS Safety Report 7917730-7 (Version None)
Quarter: 2011Q4

REPORT INFORMATION
  Report Type: 
  Country: None (occurrence: None)
  Receive Date: 20111116
  Receipt Date: 20111109
  Transmission Date: 20120403
  Serious: Yes (Other)
  Sender: FDA-Public Use
  Company Number: GB-UCBSA-045487

PATIENT

DRUGS (1)
  1. KEPPRA [Suspect]

REACTIONS (2)
  - DRUG WITHDRAWAL SYNDROME [None]
  - DRUG INEFFECTIVE [None]
